FAERS Safety Report 6462611-1 (Version None)
Quarter: 2009Q4

REPORT INFORMATION
  Report Type: 
  Country: None (occurrence: None)
  Receive Date: 20091130
  Receipt Date: 20091116
  Transmission Date: 20100525
  Serious: Yes (Life-Threatening)
  Sender: FDA-Public Use
  Company Number: NO-MYLANLABS-2009S1019838

PATIENT
  Age: 59 Year
  Sex: Male

DRUGS (6)
  1. METFORMIN HCL [Suspect]
     Indication: DIABETES MELLITUS
     Dosage: 1700 MG + 850 MG + 850 MG DAILY
     Route: 048
  2. RENITEC COMP [Interacting]
     Indication: DRUG USE FOR UNKNOWN INDICATION
     Route: 048
  3. IBRUPROFEN [Interacting]
     Indication: DRUG USE FOR UNKNOWN INDICATION
     Dosage: 800 MG  X 1-3
     Route: 048
  4. SIMVASTATIN [Concomitant]
     Route: 048
  5. AMARYL [Concomitant]
     Route: 048
  6. PARALGIN FORTE [Concomitant]
     Dosage: 1 TABLET  X  1-3
     Route: 048

REACTIONS (4)
  - ACUTE RESPIRATORY FAILURE [None]
  - LACTIC ACIDOSIS [None]
  - RENAL FAILURE ACUTE [None]
  - SHOCK [None]
